FAERS Safety Report 7687803-5 (Version None)
Quarter: 2011Q3

REPORT INFORMATION
  Report Type: 
  Country: None (occurrence: None)
  Receive Date: 20110817
  Receipt Date: 20110805
  Transmission Date: 20111222
  Serious: Yes (Hospitalization)
  Sender: FDA-Public Use
  Company Number: US-ELI_LILLY_AND_COMPANY-US201107003108

PATIENT
  Sex: Female

DRUGS (2)
  1. INSULIN [Concomitant]
  2. FORTEO [Suspect]
     Indication: OSTEOPOROSIS
     Dosage: 20 UG, QD
     Route: 065
     Dates: start: 20110630

REACTIONS (5)
  - VOMITING [None]
  - REHABILITATION THERAPY [None]
  - CONSTIPATION [None]
  - POST PROCEDURAL DISCOMFORT [None]
  - MUSCULOSKELETAL CHEST PAIN [None]
